FAERS Safety Report 24536731 (Version 2)
Quarter: 2024Q4

REPORT INFORMATION
  Report Type: Spontaneous
  Country: US (occurrence: US)
  Receive Date: 20241022
  Receipt Date: 20241110
  Transmission Date: 20250115
  Serious: No
  Sender: SANOFI AVENTIS
  Company Number: US-SA-2024SA301344

PATIENT
  Age: 57 Year
  Sex: Female
  Weight: 58.96 kg

DRUGS (4)
  1. DUPIXENT [Suspect]
     Active Substance: DUPILUMAB
     Indication: Neurodermatitis
     Dosage: 300 MG, QOW
     Route: 065
  2. SOFOSBUVIR AND VELPATASVIR [Concomitant]
     Active Substance: SOFOSBUVIR\VELPATASVIR
  3. METFORMIN HYDROCHLORIDE [Concomitant]
     Active Substance: METFORMIN HYDROCHLORIDE
  4. GLIMEPIRIDE [Concomitant]
     Active Substance: GLIMEPIRIDE

REACTIONS (2)
  - Injection site pain [Unknown]
  - Injection site bruising [Unknown]
